FAERS Safety Report 21610291 (Version 2)
Quarter: 2022Q4

REPORT INFORMATION
  Report Type: Spontaneous
  Country: HR (occurrence: HR)
  Receive Date: 20221117
  Receipt Date: 20221202
  Transmission Date: 20230113
  Serious: Yes (Other)
  Sender: FDA-Public Use
  Company Number: HR-AMGEN-HRVSP2022194521

PATIENT
  Sex: Male

DRUGS (4)
  1. ARANESP [Suspect]
     Active Substance: DARBEPOETIN ALFA
     Indication: Anaemia
     Dosage: 40 MICROGRAM, QWK
     Route: 040
  2. ARANESP [Suspect]
     Active Substance: DARBEPOETIN ALFA
     Dosage: 60 MICROGRAM, QWK
     Route: 040
  3. EPOETIN ALFA [Suspect]
     Active Substance: ERYTHROPOIETIN
     Indication: Anaemia
     Dosage: 6000-8000 INTERNATIONAL UNIT, QWK
     Route: 065
  4. EPOETIN ALFA [Suspect]
     Active Substance: ERYTHROPOIETIN
     Dosage: 12000 INTERNATIONAL UNIT QWK
     Route: 065

REACTIONS (7)
  - Nephroangiosclerosis [Unknown]
  - Atrial fibrillation [Unknown]
  - Cardiorenal syndrome [Unknown]
  - Drug ineffective [Unknown]
  - Hypertension [Unknown]
  - Obesity [Unknown]
  - Off label use [Unknown]
